FAERS Safety Report 8784835 (Version 1)
Quarter: 2012Q4

REPORT INFORMATION
  Report Type: Spontaneous
  Country: US (occurrence: None)
  Receive Date: 20120907
  Receipt Date: 20120907
  Transmission Date: 20130627
  Serious: Yes (Other)
  Sender: FDA-Public Use
  Company Number: None

PATIENT
  Age: 13 Year
  Sex: Female
  Weight: 90.72 kg

DRUGS (1)
  1. EPIDUO [Suspect]
     Indication: BLACKHEADS
     Route: 061
     Dates: start: 20120901, end: 20120904

REACTIONS (4)
  - Application site erythema [None]
  - Application site dryness [None]
  - Application site pain [None]
  - Application site pain [None]
